FAERS Safety Report 14941238 (Version 1)
Quarter: 2018Q2

REPORT INFORMATION
  Report Type: Report from Study
  Country: None (occurrence: CA)
  Receive Date: 20180525
  Receipt Date: 20180525
  Transmission Date: 20180711
  Serious: Yes (Hospitalization, Other)
  Sender: FDA-Public Use
  Company Number: CA-ABBVIE-18K-028-2357796-00

PATIENT
  Sex: Female

DRUGS (1)
  1. HUMIRA [Suspect]
     Active Substance: ADALIMUMAB
     Indication: CROHN^S DISEASE
     Route: 058
     Dates: start: 20170327

REACTIONS (12)
  - Proctitis [Recovering/Resolving]
  - Impaired quality of life [Not Recovered/Not Resolved]
  - Gastrointestinal stoma output decreased [Not Recovered/Not Resolved]
  - Urinary retention [Recovering/Resolving]
  - Crohn^s disease [Not Recovered/Not Resolved]
  - General physical health deterioration [Recovering/Resolving]
  - Stoma site pain [Recovering/Resolving]
  - Crohn^s disease [Recovered/Resolved]
  - Frequent bowel movements [Recovering/Resolving]
  - Gastrointestinal stoma output decreased [Recovered/Resolved]
  - Dysuria [Recovering/Resolving]
  - Oliguria [Recovering/Resolving]

NARRATIVE: CASE EVENT DATE: 2017
